FAERS Safety Report 4527238-7 (Version None)
Quarter: 2004Q4

REPORT INFORMATION
  Report Type: 
  Country: None (occurrence: None)
  Receive Date: 20041214
  Receipt Date: 20041214
  Transmission Date: 20050328
  Serious: Yes (Disabling, Other)
  Sender: FDA-Public Use
  Company Number: None

PATIENT
  Age: 76 Year
  Weight: 98.8842 kg

DRUGS (2)
  1. AMIODARONE [Suspect]
     Indication: ARRHYTHMIA
     Dosage: 400 MG EVERY DAY
     Dates: start: 20020601, end: 20021201
  2. ASPIRIN [Concomitant]

REACTIONS (4)
  - BLINDNESS UNILATERAL [None]
  - FEELING ABNORMAL [None]
  - MACULAR DEGENERATION [None]
  - VISION BLURRED [None]
